FAERS Safety Report 22634762 (Version 1)
Quarter: 2023Q2

REPORT INFORMATION
  Report Type: Spontaneous
  Country: US (occurrence: None)
  Receive Date: 20230620
  Receipt Date: 20230620
  Transmission Date: 20230722
  Serious: No
  Sender: FDA-Public Use
  Company Number: None

PATIENT
  Sex: Male

DRUGS (13)
  1. HYCAMTIN [Suspect]
     Active Substance: TOPOTECAN HYDROCHLORIDE
     Indication: Lung neoplasm malignant
     Dosage: FREQUENCY : DAILY;?OTHER ROUTE : PO 5D ON/21D CYCLE;?
     Route: 050
  2. HYCAMTIN [Suspect]
     Active Substance: TOPOTECAN HYDROCHLORIDE
     Indication: Lung neoplasm malignant
     Dosage: FREQUENCY : DAILY;?OTHER ROUTE : PO 5DON/21D CYCLE;?
     Route: 050
  3. LIPITOR [Concomitant]
     Active Substance: ATORVASTATIN CALCIUM
  4. FERROUS SULFATE [Concomitant]
     Active Substance: FERROUS SULFATE
  5. GABAPENTIN [Concomitant]
  6. GLIMEPIRIDE [Concomitant]
     Active Substance: GLIMEPIRIDE
  7. LISINOPRIL [Concomitant]
  8. OMEPRAZOLE [Concomitant]
     Active Substance: OMEPRAZOLE
  9. ZOFRAN [Concomitant]
     Active Substance: ONDANSETRON HYDROCHLORIDE
  10. SPPIRIVA [Concomitant]
  11. VENTOLIN [Concomitant]
  12. WIXELA INHUB [Concomitant]
     Active Substance: FLUTICASONE PROPIONATE\SALMETEROL XINAFOATE
  13. XARELTO [Concomitant]
     Active Substance: RIVAROXABAN

REACTIONS (2)
  - Pancytopenia [None]
  - Sepsis [None]
